FAERS Safety Report 22199948 (Version 1)
Quarter: 2023Q2

REPORT INFORMATION
  Report Type: Spontaneous
  Country: US (occurrence: None)
  Receive Date: 20230412
  Receipt Date: 20230412
  Transmission Date: 20230721
  Serious: No
  Sender: FDA-Public Use
  Company Number: 2023A084204

PATIENT
  Sex: Female

DRUGS (2)
  1. IMJUDO [Suspect]
     Active Substance: TREMELIMUMAB-ACTL
     Indication: Hepatocellular carcinoma
     Route: 042
  2. IMFINZI [Suspect]
     Active Substance: DURVALUMAB
     Route: 042

REACTIONS (1)
  - Hallucination [Not Recovered/Not Resolved]
